FAERS Safety Report 23242258 (Version 1)
Quarter: 2023Q4

REPORT INFORMATION
  Report Type: Spontaneous
  Country: ES (occurrence: ES)
  Receive Date: 20231129
  Receipt Date: 20231129
  Transmission Date: 20240110
  Serious: Yes (Hospitalization)
  Sender: FDA-Public Use
  Company Number: None

PATIENT
  Age: 90 Year
  Sex: Female

DRUGS (4)
  1. FUROSEMIDE [Suspect]
     Active Substance: FUROSEMIDE
     Indication: Cardiac failure
     Dosage: 40 MILLIGRAM, BEFORE BREAK FAST
     Route: 048
     Dates: start: 20220923, end: 20230417
  2. ELIQUIS [Concomitant]
     Active Substance: APIXABAN
     Indication: Atrial fibrillation
     Dosage: 2.5 MILLIGRAM, BID, EVERY PER 12 HOURS
     Route: 048
     Dates: start: 20210607
  3. ACETAMINOPHEN [Concomitant]
     Active Substance: ACETAMINOPHEN
     Indication: Headache
     Dosage: 650 MILLIGRAM, Q8H
     Route: 048
     Dates: start: 20211211
  4. Nolotil [Concomitant]
     Indication: Headache
     Dosage: 575 MILLIGRAM, QD, EVERY/ 24 HOURS
     Route: 048
     Dates: start: 20220525

REACTIONS (1)
  - Syncope [Recovered/Resolved]

NARRATIVE: CASE EVENT DATE: 20230410
